FAERS Safety Report 4514063-6 (Version None)
Quarter: 2004Q4

REPORT INFORMATION
  Report Type: 
  Country: None (occurrence: None)
  Receive Date: 20041130
  Receipt Date: 20041117
  Transmission Date: 20050328
  Serious: Yes (Hospitalization)
  Sender: FDA-Public Use
  Company Number: GB-GLAXOSMITHKLINE-B0357563A

PATIENT
  Age: 81 Year
  Sex: Male

DRUGS (5)
  1. CO-AMOXICLAV [Suspect]
     Indication: EAR INFECTION
     Route: 048
     Dates: start: 20040910, end: 20040917
  2. LISINOPRIL [Concomitant]
     Indication: HYPERTENSION
     Dosage: 2.5MG PER DAY
     Route: 048
     Dates: start: 20010101
  3. NICORANDIL [Concomitant]
     Indication: PAIN
     Dosage: 10MG PER DAY
     Route: 048
     Dates: start: 20010101
  4. ASPIRIN [Concomitant]
     Indication: PAIN
     Dosage: 150MG PER DAY
     Route: 048
     Dates: start: 20010101
  5. BENDROFLUAZIDE [Concomitant]
     Indication: HYPERTENSION
     Dosage: 2.5MG PER DAY
     Route: 048
     Dates: start: 20010101

REACTIONS (7)
  - ASPARTATE AMINOTRANSFERASE INCREASED [None]
  - BLOOD ALKALINE PHOSPHATASE INCREASED [None]
  - BLOOD BILIRUBIN INCREASED [None]
  - CHROMATURIA [None]
  - FAECES DISCOLOURED [None]
  - GAMMA-GLUTAMYLTRANSFERASE INCREASED [None]
  - JAUNDICE CHOLESTATIC [None]
